FAERS Safety Report 22254396 (Version 1)
Quarter: 2023Q2

REPORT INFORMATION
  Report Type: Spontaneous
  Country: US (occurrence: None)
  Receive Date: 20230425
  Receipt Date: 20230425
  Transmission Date: 20230722
  Serious: No
  Sender: FDA-Public Use
  Company Number: None

PATIENT
  Sex: Female

DRUGS (2)
  1. METHYLPHENIDATE [Suspect]
     Active Substance: METHYLPHENIDATE
  2. ALLEGRA [Concomitant]
     Active Substance: FEXOFENADINE HYDROCHLORIDE

REACTIONS (7)
  - Product substitution issue [None]
  - Feeling abnormal [None]
  - Drug ineffective [None]
  - Tachyphrenia [None]
  - Dry mouth [None]
  - Abnormal behaviour [None]
  - Social avoidant behaviour [None]

NARRATIVE: CASE EVENT DATE: 20230403
